FAERS Safety Report 5226353-2 (Version None)
Quarter: 2007Q1

REPORT INFORMATION
  Report Type: 
  Country: None (occurrence: None)
  Receive Date: 20070129
  Receipt Date: 20070122
  Transmission Date: 20070707
  Serious: Yes (Life-Threatening, Hospitalization)
  Sender: FDA-Public Use
  Company Number: S06-USA-04970-01

PATIENT
  Age: 31 Year
  Sex: Female
  Weight: 52.1637 kg

DRUGS (9)
  1. LEXAPRO [Suspect]
     Dosage: 30 MG BID PO
     Route: 048
     Dates: start: 20031101
  2. GABITRIL [Suspect]
     Indication: PSYCHOGENIC PAIN DISORDER
     Dates: start: 20031101, end: 20040101
  3. GABITRIL [Suspect]
     Indication: TEMPORAL LOBE EPILEPSY
     Dates: start: 20031101, end: 20040101
  4. ADDERALL 10 [Suspect]
     Dosage: 30 MG BID PO
     Route: 048
     Dates: start: 20030101
  5. XANAX [Suspect]
     Dosage: 1 TABLET
     Dates: end: 20060201
  6. NEURONTIN [Suspect]
     Dates: start: 20040101
  7. SYNTHROID (LEVOTHYROID SODIUM) [Concomitant]
  8. KEPPRA [Concomitant]
  9. REMERON [Concomitant]

REACTIONS (31)
  - AGGRESSION [None]
  - AGITATION [None]
  - ALCOHOL USE [None]
  - AMNESIA [None]
  - ANXIETY [None]
  - COGNITIVE DISORDER [None]
  - CONVULSION [None]
  - DELIRIUM [None]
  - DRUG DEPENDENCE [None]
  - DRUG INTERACTION [None]
  - DRUG SCREEN POSITIVE [None]
  - FALL [None]
  - INCORRECT DOSE ADMINISTERED [None]
  - INJURY [None]
  - INSOMNIA [None]
  - IRRITABILITY [None]
  - LOSS OF CONSCIOUSNESS [None]
  - MAJOR DEPRESSION [None]
  - NERVOUS SYSTEM DISORDER [None]
  - NIGHTMARE [None]
  - OVERDOSE [None]
  - PAIN [None]
  - POST-TRAUMATIC STRESS DISORDER [None]
  - PSYCHOTIC DISORDER [None]
  - REFUSAL OF TREATMENT BY PATIENT [None]
  - SCAR [None]
  - SELF-MEDICATION [None]
  - STATUS EPILEPTICUS [None]
  - SUICIDAL BEHAVIOUR [None]
  - SUICIDAL IDEATION [None]
  - SUICIDE ATTEMPT [None]
